FAERS Safety Report 12869877 (Version 3)
Quarter: 2016Q4

REPORT INFORMATION
  Report Type: Spontaneous
  Country: US (occurrence: US)
  Receive Date: 20161021
  Receipt Date: 20161213
  Transmission Date: 20170207
  Serious: No
  Sender: FDA-Public Use
  Company Number: US-PFIZER INC-2016491308

PATIENT
  Age: 64 Year
  Sex: Female
  Weight: 60 kg

DRUGS (11)
  1. PREMARIN [Suspect]
     Active Substance: ESTROGENS, CONJUGATED
     Dosage: 0.5 G, 2X/WEEK
     Route: 061
     Dates: start: 20161004
  2. TETRACAINE HCL [Concomitant]
     Dosage: 0.5 %, AS NEEDED (USE AS DIRECTED QD PRN)
     Route: 047
     Dates: start: 20160225
  3. TESTOSTERONE. [Concomitant]
     Active Substance: TESTOSTERONE
     Dosage: UNK (TESTOSTERONE2%VERSABASE CREAM;APPLY 1/4 TEASPOON OF CREAM TO PULSE POINTS THREE TIMES PER WEEK)
     Dates: start: 20160301
  4. VALTREX [Concomitant]
     Active Substance: VALACYCLOVIR HYDROCHLORIDE
     Dosage: 0.5 G, 2X/DAY (TAKE 1/2 TABLET BY ORAL ROUTE BID)
     Route: 048
     Dates: start: 20160921
  5. LYRICA [Suspect]
     Active Substance: PREGABALIN
     Indication: NEURALGIA
     Dosage: 300 MG, DAILY
     Route: 048
     Dates: start: 20161026
  6. SUMATRIPTAN SUCCINATE. [Concomitant]
     Active Substance: SUMATRIPTAN SUCCINATE
     Indication: HEADACHE
  7. LYRICA [Suspect]
     Active Substance: PREGABALIN
     Indication: MIGRAINE
     Dosage: 150 MG, 1X/DAY
     Route: 048
     Dates: start: 2012
  8. IMITREX [Concomitant]
     Active Substance: SUMATRIPTAN SUCCINATE
     Dosage: 0.5 ML, AS NEEDED (ONCE)
     Route: 058
     Dates: start: 20160213
  9. DIAZEPAM. [Concomitant]
     Active Substance: DIAZEPAM
     Dosage: 10 MG, AS NEEDED (DAILY)
     Route: 048
     Dates: start: 20161103
  10. PROPRANOLOL [Concomitant]
     Active Substance: PROPRANOLOL\PROPRANOLOL HYDROCHLORIDE
     Indication: ANXIETY
     Dosage: 20 MG, AS NEEDED (3 TIMES PER DAY)
     Route: 048
     Dates: start: 20160921
  11. SUMATRIPTAN SUCCINATE. [Concomitant]
     Active Substance: SUMATRIPTAN SUCCINATE
     Indication: MIGRAINE
     Dosage: 100 MG, UNK (TAKE 1 TABLET (100 MG) BY ORAL ROUTE AFTER ONSET OF MIGRAINE;MAY REPEAT AFTER 2 HR)
     Route: 048
     Dates: start: 20160913

REACTIONS (3)
  - Vulvovaginal dryness [Unknown]
  - Dyspareunia [Unknown]
  - Menopausal symptoms [Unknown]
